FAERS Safety Report 8339257-3 (Version None)
Quarter: 2012Q2

REPORT INFORMATION
  Report Type: 
  Country: None (occurrence: None)
  Receive Date: 20120502
  Receipt Date: 20120419
  Transmission Date: 20120825
  Serious: Yes (Hospitalization, Other)
  Sender: FDA-Public Use
  Company Number: 2012000096

PATIENT
  Age: 71 Year
  Sex: Male

DRUGS (3)
  1. VOLTAREN [Concomitant]
  2. ACEON [Suspect]
     Indication: VENTRICULAR EXTRASYSTOLES
     Dosage: 4 MG, QD, ORAL
     Route: 048
     Dates: start: 20110101
  3. L THYROXIN JOD BETA (LEVOTHYROXINE SODIUM, POTASSIUM IODIDE) [Concomitant]

REACTIONS (3)
  - ALDOSTERONE URINE DECREASED [None]
  - ADRENAL NEOPLASM [None]
  - LIPOSARCOMA [None]
